FAERS Safety Report 6539848-6 (Version None)
Quarter: 2010Q1

REPORT INFORMATION
  Report Type: 
  Country: None (occurrence: None)
  Receive Date: 20100115
  Receipt Date: 20100105
  Transmission Date: 20100710
  Serious: Yes (Death)
  Sender: FDA-Public Use
  Company Number: BR-GENENTECH-296646

PATIENT
  Sex: Male

DRUGS (1)
  1. RITUXIMAB [Suspect]
     Indication: RHEUMATOID ARTHRITIS
     Dosage: 100 MG/ML, UNK
     Route: 042
     Dates: start: 20090101, end: 20090101

REACTIONS (2)
  - DEATH [None]
  - RHEUMATOID ARTHRITIS [None]
